FAERS Safety Report 13720815 (Version 2)
Quarter: 2017Q3

REPORT INFORMATION
  Report Type: Spontaneous
  Country: BY (occurrence: BY)
  Receive Date: 20170706
  Receipt Date: 20170726
  Transmission Date: 20171127
  Serious: Yes (Death)
  Sender: FDA-Public Use
  Company Number: BY-ROCHE-1957162

PATIENT
  Age: 34 Year
  Sex: Female
  Weight: 60 kg

DRUGS (1)
  1. ACTILYSE [Suspect]
     Active Substance: ALTEPLASE
     Indication: PULMONARY THROMBOSIS
     Route: 051
     Dates: start: 20170615

REACTIONS (5)
  - Off label use [Unknown]
  - Multiple organ dysfunction syndrome [Fatal]
  - Pulmonary embolism [Fatal]
  - Cardiopulmonary failure [Fatal]
  - Post cardiac arrest syndrome [Fatal]

NARRATIVE: CASE EVENT DATE: 20170615
